FAERS Safety Report 23779956 (Version 2)
Quarter: 2024Q2

REPORT INFORMATION
  Report Type: Spontaneous
  Country: CN (occurrence: CN)
  Receive Date: 20240424
  Receipt Date: 20240515
  Transmission Date: 20240716
  Serious: Yes (Other)
  Sender: FDA-Public Use
  Company Number: CN-PFIZER INC-PV202400050188

PATIENT
  Age: 57 Year
  Sex: Female

DRUGS (3)
  1. IBRANCE [Suspect]
     Active Substance: PALBOCICLIB
     Dosage: 125 MG, 21 DAYS ON THEN 7 DAYS OFF
     Dates: start: 20240406
  2. AROMASIN [Suspect]
     Active Substance: EXEMESTANE
     Dosage: 25 MG, 1X/DAY
     Dates: start: 20240406
  3. XGEVA [Suspect]
     Active Substance: DENOSUMAB
     Dosage: 120 MG, EVERY 28 DAYS
     Dates: start: 20240406

REACTIONS (5)
  - White blood cell count decreased [Unknown]
  - Alanine aminotransferase increased [Unknown]
  - Aspartate aminotransferase increased [Unknown]
  - Fatigue [Unknown]
  - Hiccups [Unknown]

NARRATIVE: CASE EVENT DATE: 20240419
